FAERS Safety Report 11722369 (Version 2)
Quarter: 2015Q4

REPORT INFORMATION
  Report Type: Spontaneous
  Country: US (occurrence: US)
  Receive Date: 20151111
  Receipt Date: 20151116
  Transmission Date: 20160304
  Serious: Yes (Other)
  Sender: FDA-Public Use
  Company Number: US-TEVA-608067ACC

PATIENT
  Age: 22 Year
  Sex: Female
  Weight: 68.1 kg

DRUGS (1)
  1. PLAN B ONE-STEP [Suspect]
     Active Substance: LEVONORGESTREL
     Indication: POST COITAL CONTRACEPTION
     Dates: start: 20150222, end: 20150222

REACTIONS (2)
  - Pregnancy after post coital contraception [Unknown]
  - Normal newborn [Unknown]

NARRATIVE: CASE EVENT DATE: 20151028
